FAERS Safety Report 4378040-0 (Version None)
Quarter: 2004Q2

REPORT INFORMATION
  Report Type: 
  Country: None (occurrence: None)
  Receive Date: 20040609
  Receipt Date: 20040527
  Transmission Date: 20050107
  Serious: Yes (Hospitalization)
  Sender: FDA-Public Use
  Company Number: 2004034480

PATIENT
  Age: 75 Year
  Sex: Female

DRUGS (11)
  1. CARDENALIN (DOXAZOSIN) [Suspect]
     Indication: HYPERTENSION
     Dosage: 2 MG, ORAL
     Route: 048
     Dates: start: 20040520, end: 20040521
  2. NORVASC [Suspect]
     Indication: ILL-DEFINED DISORDER
     Dosage: 10 MG, ORAL
     Route: 048
     Dates: start: 20031001
  3. AROTINOLOL HYDROCHLORIDE (AROTINOLOL HYDROCHLORIDE) [Concomitant]
  4. ACETYLSALICYLIC ACID SRT [Concomitant]
  5. FAMOTIDINE [Concomitant]
  6. NICORANDIL (NICORANDIL) [Concomitant]
  7. TEPRENONE (TEPRENONE) [Concomitant]
  8. BROMHEXINE HYDROCHLORIDE (BROMHEXINE HYDROCHLORIDE) [Concomitant]
  9. STARLIX [Concomitant]
  10. VOGLIBOSE (VOGLIBOSE) [Concomitant]
  11. IMIDAPRILE HYDROCHLORIDE (IMIDAPRIL HYDROCHLORIDE) [Concomitant]

REACTIONS (2)
  - BLOOD PRESSURE INADEQUATELY CONTROLLED [None]
  - DIZZINESS POSTURAL [None]
